FAERS Safety Report 6576445-0 (Version None)
Quarter: 2010Q1

REPORT INFORMATION
  Report Type: 
  Country: None (occurrence: None)
  Receive Date: 20100210
  Receipt Date: 20100201
  Transmission Date: 20100710
  Serious: Yes (Other)
  Sender: FDA-Public Use
  Company Number: PHHY2010CR05502

PATIENT
  Age: 81 Year
  Sex: Male

DRUGS (8)
  1. EXELON [Suspect]
     Indication: DEMENTIA
     Dosage: ONE TOPIC PATCH DAILY
     Route: 062
  2. EXELON [Suspect]
     Dosage: SIX PATCHES
     Route: 062
  3. TRILEPTAL [Concomitant]
     Indication: EPILEPSY
     Dosage: 300 MG BID
  4. METHOTREXATE [Concomitant]
     Dosage: 25 MG EVERY 4 DAYS
     Route: 048
  5. NORVASC [Concomitant]
     Indication: HYPERTENSION
     Dosage: 5 MG DAILY
     Route: 048
  6. HYDROCHLOROTHIAZIDE [Concomitant]
     Indication: HYPERTENSION
     Dosage: 12.5 MG DAILY
     Route: 048
  7. PLAVIX [Concomitant]
     Dosage: 75 MG DAILY
     Route: 048
  8. VITAMINS [Concomitant]
     Dosage: UNK

REACTIONS (5)
  - COLD SWEAT [None]
  - DIARRHOEA [None]
  - NAUSEA [None]
  - OVERDOSE [None]
  - VOMITING [None]
